FAERS Safety Report 8314734-X (Version None)
Quarter: 2012Q2

REPORT INFORMATION
  Report Type: 
  Country: None (occurrence: None)
  Receive Date: 20120426
  Receipt Date: 20120423
  Transmission Date: 20120825
  Serious: Yes (Death)
  Sender: FDA-Public Use
  Company Number: AU-B.I. PHARMACEUTICALS,INC./RIDGEFIELD-2012-AU-00513AU

PATIENT
  Sex: Female
  Weight: 40 kg

DRUGS (4)
  1. PRADAXA [Suspect]
     Indication: CEREBROVASCULAR ACCIDENT PROPHYLAXIS
     Dosage: 220 MG
     Dates: start: 20110701
  2. NEXIUM [Concomitant]
  3. ATENOLOL [Concomitant]
     Dosage: 100 MG
  4. PERINDOPRIL ERBUMINE [Concomitant]

REACTIONS (3)
  - CARCINOID TUMOUR OF THE CAECUM [None]
  - IRON DEFICIENCY [None]
  - RECTAL HAEMORRHAGE [None]
